FAERS Safety Report 19582074 (Version 1)
Quarter: 2021Q3

REPORT INFORMATION
  Report Type: Spontaneous
  Country: FR (occurrence: FR)
  Receive Date: 20210720
  Receipt Date: 20210720
  Transmission Date: 20211014
  Serious: Yes (Hospitalization)
  Sender: FDA-Public Use
  Company Number: FR-SUN PHARMACEUTICAL INDUSTRIES LTD-2021RR-304988

PATIENT
  Age: 45 Year
  Sex: Female
  Weight: 49 kg

DRUGS (4)
  1. IRINOTECAN [Suspect]
     Active Substance: IRINOTECAN
     Indication: ADENOCARCINOMA OF COLON
     Dosage: 180 MILLIGRAM/SQ. METER, UNK
     Route: 042
     Dates: start: 20210519, end: 20210519
  2. VECTIBIX [Suspect]
     Active Substance: PANITUMUMAB
     Indication: ADENOCARCINOMA OF COLON
     Dosage: 6 MILLIGRAM/KILOGRAM, UNK
     Route: 042
     Dates: start: 20210519, end: 20210519
  3. FLUOROURACILE [Suspect]
     Active Substance: FLUOROURACIL
     Indication: ADENOCARCINOMA OF COLON
     Dosage: 400 MILLIGRAM/SQ. METER, UNK
     Route: 042
     Dates: start: 20210519, end: 20210519
  4. OXALIPLATIN. [Suspect]
     Active Substance: OXALIPLATIN
     Indication: ADENOCARCINOMA OF COLON
     Dosage: 85 MILLIGRAM/SQ. METER, UNK
     Route: 042
     Dates: start: 20210519, end: 20210519

REACTIONS (2)
  - Large intestine perforation [Recovering/Resolving]
  - Ileal perforation [Recovering/Resolving]

NARRATIVE: CASE EVENT DATE: 20210524
